FAERS Safety Report 19858024 (Version 1)
Quarter: 2021Q3

REPORT INFORMATION
  Report Type: Spontaneous
  Country: BR (occurrence: BR)
  Receive Date: 20210921
  Receipt Date: 20210921
  Transmission Date: 20211014
  Serious: Yes (Hospitalization)
  Sender: FDA-Public Use
  Company Number: BR-CELLTRION INC.-2021BR012690

PATIENT

DRUGS (2)
  1. INFLIXIMAB [Suspect]
     Active Substance: INFLIXIMAB
     Indication: CROHN^S DISEASE
     Dosage: COMBINATION THERAPY (INFLIXIMAB PLUS AZATHIOPRINE)
  2. AZATHIOPRINE. [Suspect]
     Active Substance: AZATHIOPRINE
     Indication: CROHN^S DISEASE
     Dosage: COMBINATION THERAPY (INFLIXIMAB PLUS AZATHIOPRINE)

REACTIONS (2)
  - Histoplasmosis disseminated [Recovering/Resolving]
  - Granulomatous liver disease [Recovering/Resolving]
